FAERS Safety Report 6102252-9 (Version None)
Quarter: 2009Q1

REPORT INFORMATION
  Report Type: 
  Country: None (occurrence: None)
  Receive Date: 20090304
  Receipt Date: 20090224
  Transmission Date: 20090719
  Serious: Yes (Other)
  Sender: FDA-Public Use
  Company Number: BE-GILEAD-2009-0020528

PATIENT
  Sex: Female

DRUGS (1)
  1. CIDOFOVIR [Suspect]
     Indication: HUMAN HERPESVIRUS 6 INFECTION

REACTIONS (4)
  - DIZZINESS [None]
  - DYSPNOEA [None]
  - HYPOTENSION [None]
  - INFLAMMATION [None]
